FAERS Safety Report 7320685-X (Version None)
Quarter: 2011Q1

REPORT INFORMATION
  Report Type: 
  Country: None (occurrence: None)
  Receive Date: 20110228
  Receipt Date: 20110224
  Transmission Date: 20110831
  Serious: Yes (Death, Hospitalization)
  Sender: FDA-Public Use
  Company Number: DE-B.I. PHARMACEUTICALS,INC./RIDGEFIELD-2011-DE-00871DE

PATIENT
  Sex: Male
  Weight: 80 kg

DRUGS (14)
  1. BEROTEC [Concomitant]
     Indication: CHRONIC OBSTRUCTIVE PULMONARY DISEASE
     Dosage: PRN
     Route: 055
     Dates: start: 20101201
  2. SALMETEROL [Suspect]
     Indication: CHRONIC OBSTRUCTIVE PULMONARY DISEASE
     Dosage: 100 MCG
     Route: 055
     Dates: start: 20100602, end: 20101207
  3. TOREM [Concomitant]
     Indication: BENIGN PROSTATIC HYPERPLASIA
     Dosage: 20 MG
     Route: 048
     Dates: start: 20101201
  4. TIOTROPIUM BROMIDE [Suspect]
     Indication: CHRONIC OBSTRUCTIVE PULMONARY DISEASE
     Dosage: 18 MCG
     Route: 055
     Dates: start: 20100602, end: 20101207
  5. VIANI [Concomitant]
     Indication: CHRONIC OBSTRUCTIVE PULMONARY DISEASE
     Dosage: FORM.: DPI; STR.: 50/150MCG, D. DOSE: 100/300 MCG
     Route: 055
     Dates: start: 20101201
  6. BLIND (FLUTICASONE) [Suspect]
     Indication: CHRONIC OBSTRUCTIVE PULMONARY DISEASE
     Dosage: RT: UNK
     Route: 055
     Dates: start: 20100709, end: 20101207
  7. ASPIRIN [Concomitant]
     Indication: COR PULMONALE
     Dosage: 100 MG
     Route: 048
     Dates: start: 20101201
  8. DELIX [Concomitant]
     Indication: COR PULMONALE
     Dosage: 1.25 MG
     Route: 048
     Dates: start: 20101201
  9. SPIRIVA [Concomitant]
     Indication: CHRONIC OBSTRUCTIVE PULMONARY DISEASE
     Dosage: 18 MCG
     Route: 055
     Dates: start: 20101201
  10. ALNA [Concomitant]
     Dosage: 0.4 MG
     Route: 048
  11. SALBUTAMOL [Suspect]
     Indication: CHRONIC OBSTRUCTIVE PULMONARY DISEASE
     Dosage: RT:PRN
     Route: 055
     Dates: start: 20100602, end: 20101207
  12. TIOTROPIUM BROMIDE [Suspect]
     Route: 055
  13. BRONCHORETARD [Concomitant]
     Indication: CHRONIC OBSTRUCTIVE PULMONARY DISEASE
     Route: 048
     Dates: start: 20050101
  14. SIMVA [Concomitant]
     Indication: HYPERCHOLESTEROLAEMIA
     Dosage: 20 MG
     Route: 048
     Dates: start: 20101201

REACTIONS (2)
  - SUDDEN DEATH [None]
  - ATRIAL FLUTTER [None]
